FAERS Safety Report 9178705 (Version 1)
Quarter: 2012Q4

REPORT INFORMATION
  Report Type: 
  Country: US (occurrence: US)
  Receive Date: 20121029
  Receipt Date: 20121029
  Transmission Date: 20130627
  Serious: No
  Sender: FDA-Public Use
  Company Number: US-AMGEN-USASP2012052672

PATIENT
  Age: 58 Year
  Sex: Female
  Weight: 101.13 kg

DRUGS (7)
  1. ENBREL [Suspect]
     Indication: PRODUCT USED FOR UNKNOWN INDICATION
     Dosage: 50 mg/ml, qwk
     Route: 058
  2. TOPAMAX [Concomitant]
     Dosage: 25 mg, UNK
  3. SERTRALINE [Concomitant]
     Dosage: 25 mg, UNK
  4. VICODIN [Concomitant]
     Dosage: 5-500mg, UNK
  5. FENTANYL [Concomitant]
     Dosage: 25 mcg/HR, UNK
  6. IMITREX                            /01044801/ [Concomitant]
     Dosage: 4 mg/0.5, UNK
  7. LEVOTHYROXIN [Concomitant]
     Dosage: 500 mcg, UNK

REACTIONS (4)
  - Nausea [Unknown]
  - Vomiting [Unknown]
  - Flatulence [Unknown]
  - Abdominal distension [Unknown]
